FAERS Safety Report 7824975-3 (Version None)
Quarter: 2011Q4

REPORT INFORMATION
  Report Type: 
  Country: None (occurrence: None)
  Receive Date: 20111019
  Receipt Date: 20110427
  Transmission Date: 20120403
  Serious: No
  Sender: FDA-Public Use
  Company Number: US-BRISTOL-MYERS SQUIBB COMPANY-15629520

PATIENT
  Age: 64 Year
  Sex: Female
  Weight: 61 kg

DRUGS (2)
  1. AVALIDE [Suspect]
     Dosage: 1DF: 150/12.5MG
  2. SYNTHROID [Suspect]

REACTIONS (2)
  - HEADACHE [None]
  - DRUG INEFFECTIVE [None]
